FAERS Safety Report 6167635-X (Version None)
Quarter: 2009Q2

REPORT INFORMATION
  Report Type: 
  Country: None (occurrence: None)
  Receive Date: 20090424
  Receipt Date: 20080326
  Transmission Date: 20091009
  Serious: Yes (Other)
  Sender: FDA-Public Use
  Company Number: PHHY2008GB03852

PATIENT
  Age: 38 Year
  Sex: Female

DRUGS (2)
  1. CARBAMAZEPINE [Suspect]
     Indication: EPILEPSY
     Dosage: 200 MG, BID
  2. TOPIRAMATE [Concomitant]

REACTIONS (1)
  - ANGLE CLOSURE GLAUCOMA [None]
